FAERS Safety Report 13651849 (Version 1)
Quarter: 2017Q2

REPORT INFORMATION
  Report Type: Spontaneous
  Country: US (occurrence: US)
  Receive Date: 20170614
  Receipt Date: 20170614
  Transmission Date: 20170830
  Serious: Yes (Hospitalization, Other)
  Sender: FDA-Public Use
  Company Number: US-TEVA-777181USA

PATIENT
  Sex: Male

DRUGS (3)
  1. PALIPERIDONE. [Suspect]
     Active Substance: PALIPERIDONE
     Dosage: 12 MILLIGRAM DAILY;
     Route: 048
     Dates: start: 201705, end: 2017
  2. INVEGA SUSTENNA [Suspect]
     Active Substance: PALIPERIDONE PALMITATE
     Route: 030
     Dates: start: 2017, end: 2017
  3. INVEGA SUSTENNA [Suspect]
     Active Substance: PALIPERIDONE PALMITATE
     Route: 030
     Dates: start: 2017, end: 2017

REACTIONS (3)
  - Hospitalisation [Unknown]
  - Unresponsive to stimuli [Recovering/Resolving]
  - Visual impairment [Unknown]

NARRATIVE: CASE EVENT DATE: 201705
